FAERS Safety Report 22036287 (Version 1)
Quarter: 2023Q1

REPORT INFORMATION
  Report Type: Spontaneous
  Country: US (occurrence: US)
  Receive Date: 20230225
  Receipt Date: 20230225
  Transmission Date: 20230418
  Serious: No
  Sender: FDA-Public Use
  Company Number: US-Accord-288076

PATIENT
  Sex: Female
  Weight: 59.09 kg

DRUGS (2)
  1. DILTIAZEM [Suspect]
     Active Substance: DILTIAZEM
     Indication: Atrial fibrillation
     Dosage: TWICE DAILY, EXTENDED-RELEASE CAPSULE
     Route: 048
     Dates: start: 20220804
  2. METOPROLOL [Concomitant]
     Active Substance: METOPROLOL
     Indication: Product used for unknown indication

REACTIONS (4)
  - Drug ineffective for unapproved indication [Unknown]
  - Atrial flutter [Not Recovered/Not Resolved]
  - Product substitution issue [Unknown]
  - Product use complaint [Unknown]
